FAERS Safety Report 6163504-X (Version None)
Quarter: 2009Q2

REPORT INFORMATION
  Report Type: 
  Country: None (occurrence: None)
  Receive Date: 20090422
  Receipt Date: 20090413
  Transmission Date: 20091009
  Serious: Yes (Other)
  Sender: FDA-Public Use
  Company Number: US-BIOGENIDEC-2009BI011293

PATIENT
  Age: 59 Year
  Sex: Female
  Weight: 56 kg

DRUGS (1)
  1. AVONEX [Suspect]
     Indication: MULTIPLE SCLEROSIS
     Route: 030
     Dates: start: 20010425

REACTIONS (12)
  - ABSCESS LIMB [None]
  - ACCIDENTAL NEEDLE STICK [None]
  - BREAST CANCER [None]
  - BREAST RECONSTRUCTION [None]
  - INJECTION SITE ERYTHEMA [None]
  - INJECTION SITE HAEMATOMA [None]
  - INJECTION SITE SWELLING [None]
  - INJECTION SITE WARMTH [None]
  - MENISCUS LESION [None]
  - PAIN [None]
  - STRESS [None]
  - WEIGHT DECREASED [None]
